FAERS Safety Report 21252111 (Version 1)
Quarter: 2022Q3

REPORT INFORMATION
  Report Type: Report from Study
  Country: US (occurrence: US)
  Receive Date: 20220825
  Receipt Date: 20220825
  Transmission Date: 20221027
  Serious: Yes (Hospitalization, Other)
  Sender: FDA-Public Use
  Company Number: US-TAKEDA-2021TUS058454

PATIENT
  Sex: Female
  Weight: 117 kg

DRUGS (1)
  1. IXAZOMIB [Suspect]
     Active Substance: IXAZOMIB
     Indication: Plasma cell myeloma
     Dosage: 4 MILLIGRAM
     Route: 048
     Dates: start: 20210820

REACTIONS (9)
  - Pulmonary oedema [Unknown]
  - Respiratory disorder [Unknown]
  - Blood potassium decreased [Unknown]
  - Blood glucose increased [Unknown]
  - Balance disorder [Unknown]
  - Seasonal allergy [Unknown]
  - Cough [Unknown]
  - Eye disorder [Unknown]
  - Back pain [Unknown]
